FAERS Safety Report 10559934 (Version 3)
Quarter: 2014Q4

REPORT INFORMATION
  Report Type: Report from Study
  Country: CA (occurrence: CA)
  Receive Date: 20141103
  Receipt Date: 20141222
  Transmission Date: 20150529
  Serious: Yes (Hospitalization)
  Sender: FDA-Public Use
  Company Number: CA-JNJFOC-20140908246

PATIENT
  Age: 46 Year
  Sex: Female
  Weight: 55 kg

DRUGS (3)
  1. REMICADE [Suspect]
     Active Substance: INFLIXIMAB
     Indication: CROHN^S DISEASE
     Route: 042
     Dates: start: 20140703, end: 20140703
  2. IMURAN [Concomitant]
     Active Substance: AZATHIOPRINE
     Route: 048
  3. REMICADE [Suspect]
     Active Substance: INFLIXIMAB
     Indication: CROHN^S DISEASE
     Route: 042
     Dates: start: 20100211

REACTIONS (5)
  - Thrombosis [Recovering/Resolving]
  - Abdominal abscess [Recovering/Resolving]
  - Sepsis [Unknown]
  - Intestinal perforation [Recovering/Resolving]
  - Thoracostomy [Not Recovered/Not Resolved]

NARRATIVE: CASE EVENT DATE: 2014
